FAERS Safety Report 7090335-9 (Version None)
Quarter: 2010Q4

REPORT INFORMATION
  Report Type: 
  Country: None (occurrence: None)
  Receive Date: 20101012
  Receipt Date: 20100817
  Transmission Date: 20110411
  Serious: No
  Sender: FDA-Public Use
  Company Number: US-001267

PATIENT
  Sex: Female
  Weight: 44.5 kg

DRUGS (1)
  1. KUVAN [Suspect]
     Indication: PHENYLKETONURIA
     Dosage: (900 MG QD ORAL), (1000 MG QD ORAL)
     Route: 048

REACTIONS (4)
  - ANTISOCIAL BEHAVIOUR [None]
  - DECREASED APPETITE [None]
  - DEPRESSION [None]
  - WEIGHT DECREASED [None]
